FAERS Safety Report 9529214 (Version 1)
Quarter: 2013Q1

REPORT INFORMATION
  Report Type: Spontaneous
  Country: US (occurrence: None)
  Receive Date: 20130318
  Receipt Date: 20130318
  Transmission Date: 20140127
  Serious: Yes (Other)
  Sender: FDA-Public Use
  Company Number: 1207USA001780

PATIENT
  Age: 53 Year
  Sex: Male

DRUGS (3)
  1. PEGINTRON (PEGINTERFERON ALFA-2B) POWDER FOR INJECTION [Suspect]
     Indication: HEPATITIS C
     Route: 058
     Dates: start: 20120303, end: 20120420
  2. RIBAVIRIN (WARRICK) (RIBAVIRIN (+)INTERFERON ALFA-2B) CAPSULE [Concomitant]
  3. TELAPREVIR (TELAPREVIR) [Concomitant]

REACTIONS (4)
  - Pruritus generalised [None]
  - Hypersensitivity [None]
  - Urticaria [None]
  - Rash [None]
